FAERS Safety Report 5400475-5 (Version None)
Quarter: 2007Q3

REPORT INFORMATION
  Report Type: 
  Country: None (occurrence: None)
  Receive Date: 20070730
  Receipt Date: 20070718
  Transmission Date: 20080115
  Serious: Yes (Hospitalization)
  Sender: FDA-Public Use
  Company Number: US-MERCK-0609USA04349

PATIENT
  Age: 80 Year
  Sex: Female

DRUGS (3)
  1. ZOCOR [Suspect]
     Route: 048
  2. ZOCOR [Suspect]
     Route: 048
     Dates: end: 20020327
  3. METHOTREXATE [Suspect]
     Route: 065

REACTIONS (2)
  - DRUG HYPERSENSITIVITY [None]
  - PANCYTOPENIA [None]
